FAERS Safety Report 6321016-4 (Version None)
Quarter: 2009Q3

REPORT INFORMATION
  Report Type: 
  Country: None (occurrence: None)
  Receive Date: 20090822
  Receipt Date: 20081222
  Transmission Date: 20100115
  Serious: No
  Sender: FDA-Public Use
  Company Number: US-ABBOTT-08P-163-0494566-00

PATIENT
  Sex: Female
  Weight: 63.56 kg

DRUGS (5)
  1. NIASPAN [Suspect]
     Indication: BLOOD CHOLESTEROL
     Dates: start: 20081201, end: 20081220
  2. LOVASA [Concomitant]
     Indication: BLOOD CHOLESTEROL
     Dates: start: 20081101
  3. FLUOXETINE [Concomitant]
     Indication: DEPRESSION
  4. PREMARIN [Concomitant]
     Indication: HORMONE REPLACEMENT THERAPY
  5. PRILOSEC [Concomitant]
     Indication: GASTRIC DISORDER
     Dosage: 1

REACTIONS (2)
  - RASH ERYTHEMATOUS [None]
  - RASH PRURITIC [None]
